FAERS Safety Report 7527923-9 (Version None)
Quarter: 2011Q2

REPORT INFORMATION
  Report Type: 
  Country: None (occurrence: None)
  Receive Date: 20110607
  Receipt Date: 20030214
  Transmission Date: 20111010
  Serious: Yes (Death)
  Sender: FDA-Public Use
  Company Number: PHFR2003GB00714

PATIENT
  Sex: Male

DRUGS (6)
  1. LORAZEPAM [Concomitant]
     Indication: PSYCHOTIC DISORDER
     Dosage: 2 MG, PRN
     Route: 048
     Dates: start: 20030106
  2. MIRTAZAPINE [Concomitant]
     Indication: DEPRESSION
     Dosage: 15 MG/DAY
     Route: 048
     Dates: start: 20030110
  3. RISPERIDONE [Concomitant]
     Indication: DEPRESSION
     Dosage: 10 MG, QD
     Dates: start: 20030106
  4. DIAZEPAM [Concomitant]
     Indication: ANXIETY
     Dosage: 5 MG, QD
  5. ZOPICLONE [Concomitant]
     Dosage: PRN
     Route: 048
     Dates: start: 20030107
  6. CLOZARIL [Suspect]
     Indication: SCHIZOPHRENIA
     Dosage: 250 MG/DAY
     Route: 048

REACTIONS (1)
  - COMPLETED SUICIDE [None]
